FAERS Safety Report 8515127-2 (Version None)
Quarter: 2012Q3

REPORT INFORMATION
  Report Type: 
  Country: None (occurrence: None)
  Receive Date: 20120717
  Receipt Date: 20120627
  Transmission Date: 20120928
  Serious: Yes (Other)
  Sender: FDA-Public Use
  Company Number: US-BAYER-2012-064089

PATIENT
  Age: 61 Year
  Sex: Female

DRUGS (2)
  1. CLIMARA [Suspect]
     Indication: HORMONE REPLACEMENT THERAPY
     Dosage: 0.06 MG/D, CONT
     Route: 062
  2. ANTIDEPRESSANTS [Concomitant]

REACTIONS (1)
  - SUICIDAL IDEATION [None]
